FAERS Safety Report 9620125 (Version 2)
Quarter: 2015Q2

REPORT INFORMATION
  Report Type: Spontaneous
  Country: RO (occurrence: RO)
  Receive Date: 20131014
  Receipt Date: 20150507
  Transmission Date: 20150821
  Serious: Yes (Hospitalization)
  Sender: FDA-Public Use
  Company Number: PHHY2013RO111393

PATIENT
  Age: 81 Year
  Sex: Female

DRUGS (5)
  1. DILTIAZEM [Suspect]
     Active Substance: DILTIAZEM
     Indication: SUICIDE ATTEMPT
     Dosage: 96 DF, UNK
     Route: 065
  2. EPINEPHRINE. [Concomitant]
     Active Substance: EPINEPHRINE
     Indication: SINUS BRADYCARDIA
     Dosage: 1 UG/KG/MIN
     Route: 041
  3. CALCIUM GLUCONATE. [Concomitant]
     Active Substance: CALCIUM GLUCONATE
     Dosage: 1 ML/KG, UNK
     Route: 041
  4. INDAPAMIDE. [Suspect]
     Active Substance: INDAPAMIDE
     Indication: SUICIDE ATTEMPT
     Dosage: 16 DF, UNK
  5. CALCIUM GLUCONATE. [Concomitant]
     Active Substance: CALCIUM GLUCONATE
     Indication: GASTRIC LAVAGE
     Dosage: 4 G, UNK
     Route: 065

REACTIONS (8)
  - Loss of consciousness [Recovered/Resolved]
  - Myocardial depression [Recovered/Resolved]
  - Suicide attempt [Recovered/Resolved]
  - Sinus bradycardia [Recovered/Resolved]
  - Metabolic acidosis [Recovered/Resolved]
  - Intentional overdose [Unknown]
  - Lung infiltration [Recovered/Resolved]
  - Atrioventricular block [Recovered/Resolved]
